APPROVED DRUG PRODUCT: HYDROCHLOROTHIAZIDE
Active Ingredient: HYDROCHLOROTHIAZIDE
Strength: 50MG/5ML **Federal Register determination that product was not discontinued or withdrawn for safety or effectiveness reasons**
Dosage Form/Route: SOLUTION;ORAL
Application: A088587 | Product #001
Applicant: ROXANE LABORATORIES INC
Approved: Jul 2, 1984 | RLD: Yes | RS: No | Type: DISCN